FAERS Safety Report 18409210 (Version 2)
Quarter: 2020Q4

REPORT INFORMATION
  Report Type: Spontaneous
  Country: JP (occurrence: JP)
  Receive Date: 20201021
  Receipt Date: 20201214
  Transmission Date: 20210114
  Serious: Yes (Other)
  Sender: FDA-Public Use
  Company Number: NVSJ2020JP010301

PATIENT
  Age: 29 Year
  Sex: Male

DRUGS (4)
  1. NIVOLUMAB [Concomitant]
     Active Substance: NIVOLUMAB
     Indication: PRODUCT USED FOR UNKNOWN INDICATION
     Dosage: UNK
     Route: 065
  2. AXITINIB [Concomitant]
     Active Substance: AXITINIB
     Indication: PRODUCT USED FOR UNKNOWN INDICATION
     Dosage: UNK
     Route: 065
  3. SUTENT [Concomitant]
     Active Substance: SUNITINIB MALATE
     Indication: PRODUCT USED FOR UNKNOWN INDICATION
     Dosage: UNK
     Route: 065
  4. AFINITOR [Suspect]
     Active Substance: EVEROLIMUS
     Indication: RENAL CELL CARCINOMA RECURRENT
     Dosage: 10 MG
     Route: 048

REACTIONS (2)
  - Disease progression [Not Recovered/Not Resolved]
  - Renal impairment [Not Recovered/Not Resolved]
